FAERS Safety Report 8000201-X (Version None)
Quarter: 2011Q4

REPORT INFORMATION
  Report Type: 
  Country: None (occurrence: None)
  Receive Date: 20111220
  Receipt Date: 20111220
  Transmission Date: 20120403
  Serious: Yes (Other)
  Sender: FDA-Public Use
  Company Number: None

PATIENT
  Age: 54 Year
  Sex: Female
  Weight: 67.586 kg

DRUGS (2)
  1. RIBASPHERE [Suspect]
     Dosage: 400MG TWICE DAILY
     Dates: start: 20110907
  2. PEGASYS [Suspect]
     Indication: HEPATITIS C
     Dosage: 180MCG QWEEK/
     Dates: start: 20110907

REACTIONS (1)
  - RASH [None]
